FAERS Safety Report 4682303-9 (Version None)
Quarter: 2005Q2

REPORT INFORMATION
  Report Type: 
  Country: None (occurrence: None)
  Receive Date: 20050606
  Receipt Date: 20050525
  Transmission Date: 20051028
  Serious: Yes (Hospitalization)
  Sender: FDA-Public Use
  Company Number: US-JNJFOC-20050501111

PATIENT
  Sex: Female
  Weight: 12.8 kg

DRUGS (2)
  1. CHILDREN'S MOTRIN [Suspect]
     Indication: PAIN
  2. CHILDREN'S MOTRIN [Suspect]

REACTIONS (8)
  - ABASIA [None]
  - ARTHRALGIA [None]
  - DYSGEUSIA [None]
  - FOOD ALLERGY [None]
  - JOINT SWELLING [None]
  - PRURITUS [None]
  - RASH GENERALISED [None]
  - VIRAL INFECTION [None]
